FAERS Safety Report 20919981 (Version 1)
Quarter: 2022Q2

REPORT INFORMATION
  Report Type: Spontaneous
  Country: FR (occurrence: FR)
  Receive Date: 20220606
  Receipt Date: 20220606
  Transmission Date: 20220720
  Serious: Yes (Other)
  Sender: FDA-Public Use
  Company Number: None

PATIENT
  Age: 31 Year
  Sex: Female
  Weight: 50.3 kg

DRUGS (2)
  1. CASPOFUNGIN [Suspect]
     Active Substance: CASPOFUNGIN
     Indication: Infection
     Dosage: 50 MILLIGRAM,QD,50 MG,ONE TIME PER DAY,POWDER FOR DILUTABLE SOLUTION FOR INFUSION
     Route: 042
     Dates: start: 20220314, end: 20220323
  2. MEROPENEM [Suspect]
     Active Substance: MEROPENEM
     Indication: Infection
     Dosage: 3 GRAM, QD,1 G, 3 TIMES PER DAY
     Route: 042
     Dates: start: 20220314, end: 20220324

REACTIONS (1)
  - Eosinophilia [Recovered/Resolved]

NARRATIVE: CASE EVENT DATE: 20220324
